FAERS Safety Report 9913012 (Version 8)
Quarter: 2017Q3

REPORT INFORMATION
  Report Type: Spontaneous
  Country: GB (occurrence: GB)
  Receive Date: 20140220
  Receipt Date: 20170720
  Transmission Date: 20171128
  Serious: Yes (Other)
  Sender: FDA-Public Use
  Company Number: GB-JNJFOC-20140208332

PATIENT
  Age: 58 Year
  Sex: Female

DRUGS (6)
  1. RISPERDAL CONSTA [Suspect]
     Active Substance: RISPERIDONE
     Indication: DELUSIONAL DISORDER, UNSPECIFIED TYPE
     Route: 030
  2. RISPERDAL CONSTA [Suspect]
     Active Substance: RISPERIDONE
     Indication: DELUSIONAL DISORDER, UNSPECIFIED TYPE
     Route: 030
  3. RISPERDAL CONSTA [Suspect]
     Active Substance: RISPERIDONE
     Indication: SCHIZOPHRENIA
     Route: 030
  4. RISPERDAL CONSTA [Suspect]
     Active Substance: RISPERIDONE
     Indication: DELUSIONAL DISORDER, UNSPECIFIED TYPE
     Route: 030
     Dates: start: 1987
  5. RISPERDAL CONSTA [Suspect]
     Active Substance: RISPERIDONE
     Indication: SCHIZOPHRENIA
     Route: 030
     Dates: start: 1987
  6. RISPERDAL CONSTA [Suspect]
     Active Substance: RISPERIDONE
     Indication: SCHIZOPHRENIA
     Route: 030

REACTIONS (31)
  - Back pain [Unknown]
  - Carpal tunnel syndrome [Unknown]
  - Somnolence [Unknown]
  - Muscle rigidity [Unknown]
  - Pain in extremity [Unknown]
  - Dyspepsia [Unknown]
  - Hospitalisation [Unknown]
  - Mobility decreased [Unknown]
  - Hypoaesthesia [Unknown]
  - Faeces hard [Unknown]
  - Off label use [Unknown]
  - Fatigue [Unknown]
  - Paraesthesia [Unknown]
  - Cardiovascular disorder [Unknown]
  - Exercise tolerance decreased [Unknown]
  - Nail disorder [Unknown]
  - Malaise [Unknown]
  - Treatment noncompliance [Unknown]
  - Nerve compression [Unknown]
  - Personality change [Unknown]
  - Chest pain [Unknown]
  - Colitis [Unknown]
  - Inappropriate schedule of drug administration [Unknown]
  - Nerve injury [Unknown]
  - Arthritis [Unknown]
  - Abdominal pain upper [Unknown]
  - Spinal cord injury [Unknown]
  - Mental impairment [Unknown]
  - Sensory disturbance [Unknown]
  - Mental disorder [Unknown]
  - Dry skin [Unknown]

NARRATIVE: CASE EVENT DATE: 2017
